FAERS Safety Report 4371781-0 (Version None)
Quarter: 2004Q2

REPORT INFORMATION
  Report Type: 
  Country: None (occurrence: None)
  Receive Date: 20040601
  Receipt Date: 20040525
  Transmission Date: 20050107
  Serious: Yes (Hospitalization)
  Sender: FDA-Public Use
  Company Number: TPA2004A00125

PATIENT
  Age: 66 Year
  Sex: Female

DRUGS (3)
  1. ACTOS [Suspect]
     Indication: DIABETES MELLITUS
     Dosage: 30 MG, 1 IN 1 D, PER ORAL
     Route: 048
  2. LENTE INSULIN [Concomitant]
  3. COUMADIN [Concomitant]

REACTIONS (9)
  - ANAEMIA [None]
  - AORTIC VALVE INCOMPETENCE [None]
  - CHEST DISCOMFORT [None]
  - DIZZINESS [None]
  - DYSPNOEA [None]
  - GASTRITIS [None]
  - HAEMOLYSIS [None]
  - IRON DEFICIENCY [None]
  - SMALL INTESTINAL HAEMORRHAGE [None]
